FAERS Safety Report 10784603 (Version 1)
Quarter: 2015Q1

REPORT INFORMATION
  Report Type: Spontaneous
  Country: US (occurrence: None)
  Receive Date: 20150209
  Receipt Date: 20150209
  Transmission Date: 20150721
  Serious: Yes (Disabling)
  Sender: FDA-Public Use
  Company Number: None

PATIENT
  Age: 43 Year
  Sex: Female

DRUGS (2)
  1. DULOXETINE [Suspect]
     Active Substance: DULOXETINE
     Indication: DEPRESSION
     Dosage: 1 PILL ONCE DAILY
     Route: 048
     Dates: start: 20141201, end: 20150204
  2. DULOXETINE [Suspect]
     Active Substance: DULOXETINE
     Indication: OSTEOARTHRITIS
     Dosage: 1 PILL ONCE DAILY
     Route: 048
     Dates: start: 20141201, end: 20150204

REACTIONS (6)
  - Myalgia [None]
  - Chills [None]
  - Headache [None]
  - Vertigo [None]
  - Paraesthesia [None]
  - Tunnel vision [None]

NARRATIVE: CASE EVENT DATE: 20150207
